FAERS Safety Report 5315089-5 (Version None)
Quarter: 2007Q2

REPORT INFORMATION
  Report Type: 
  Country: None (occurrence: None)
  Receive Date: 20070502
  Receipt Date: 20070420
  Transmission Date: 20071010
  Serious: Yes (Hospitalization, Disabling, Other)
  Sender: FDA-Public Use
  Company Number: US-PFIZER INC-2006100328

PATIENT
  Sex: Female
  Weight: 71.7 kg

DRUGS (2)
  1. CELEBREX [Suspect]
     Dates: start: 19990101, end: 20031101
  2. BEXTRA [Suspect]
     Indication: ARTHRITIS
     Dates: start: 20040301

REACTIONS (1)
  - CEREBROVASCULAR ACCIDENT [None]
